FAERS Safety Report 7667152-1 (Version None)
Quarter: 2011Q3

REPORT INFORMATION
  Report Type: 
  Country: None (occurrence: None)
  Receive Date: 20110806
  Receipt Date: 20110422
  Transmission Date: 20111222
  Serious: No
  Sender: FDA-Public Use
  Company Number: US-ABBOTT-11P-163-0721714-00

PATIENT
  Sex: Male
  Weight: 88.53 kg

DRUGS (5)
  1. NIASPAN [Suspect]
     Indication: BLOOD CHOLESTEROL INCREASED
     Dates: start: 20110201
  2. PRILOSEC [Concomitant]
     Indication: GASTROOESOPHAGEAL REFLUX DISEASE
  3. ASPIRIN [Concomitant]
     Indication: PROPHYLAXIS
  4. INDERAL [Concomitant]
     Indication: ESSENTIAL TREMOR
  5. XANAX [Concomitant]
     Indication: ESSENTIAL TREMOR

REACTIONS (1)
  - BACK PAIN [None]
